FAERS Safety Report 9528144 (Version 1)
Quarter: 2013Q1

REPORT INFORMATION
  Report Type: Spontaneous
  Country: US (occurrence: None)
  Receive Date: 20130314
  Receipt Date: 20130314
  Transmission Date: 20140127
  Serious: Yes (Other)
  Sender: FDA-Public Use
  Company Number: 1212USA010840

PATIENT
  Age: 63 Year
  Sex: Male

DRUGS (3)
  1. VICTRELIS [Suspect]
     Indication: HEPATITIS C
     Dosage: 800 MG, TID, 7 TO 9 HOURS APART, ORAL
     Route: 048
     Dates: start: 20121220
  2. PEGASYS [Suspect]
     Dosage: 180 MICROGRAM, QW, SUBCUTANEOUS
     Route: 058
     Dates: start: 201211
  3. RIBAPAK (RIBAVIRIN) [Suspect]
     Dosage: 600 MG, EVERY MORNING AND EVENING, ORAL
     Route: 048
     Dates: start: 201211

REACTIONS (1)
  - Influenza like illness [None]
